FAERS Safety Report 10489557 (Version 2)
Quarter: 2015Q2

REPORT INFORMATION
  Report Type: Report from Study
  Country: US (occurrence: US)
  Receive Date: 20141002
  Receipt Date: 20150626
  Transmission Date: 20150821
  Serious: No
  Sender: FDA-Public Use
  Company Number: US-UCBSA-2014012306

PATIENT
  Age: 75 Year
  Sex: Female
  Weight: 50.9 kg

DRUGS (10)
  1. FOLIC ACID. [Concomitant]
     Active Substance: FOLIC ACID
     Indication: SUPPLEMENTATION THERAPY
     Dosage: 2 MG, ONCE DAILY (QD)
     Route: 048
     Dates: start: 20121210, end: 20121227
  2. PREDNISONE. [Concomitant]
     Active Substance: PREDNISONE
     Indication: RHEUMATOID ARTHRITIS
     Dosage: 10 MG, ONCE DAILY (QD)
     Dates: start: 20120510
  3. METHOTREXATE [Concomitant]
     Active Substance: METHOTREXATE
     Indication: RHEUMATOID ARTHRITIS
     Dosage: UNK
  4. PRESERVISION [Concomitant]
     Active Substance: MINERALS\VITAMINS
     Indication: GLAUCOMA
     Dosage: UNK, 2X/DAY (BID)
     Route: 048
     Dates: start: 2009
  5. MOBIC [Concomitant]
     Active Substance: MELOXICAM
     Indication: RHEUMATOID ARTHRITIS
     Dosage: 15 MG, ONCE DAILY (QD)
     Route: 048
     Dates: start: 20120726
  6. CERTOLIZUMAB PEGOL RA [Suspect]
     Active Substance: CERTOLIZUMAB PEGOL
     Indication: RHEUMATOID ARTHRITIS
     Dosage: 400 MG, UNK, DOSE RECEIVED:3
     Route: 058
     Dates: start: 20120626, end: 20120724
  7. CERTOLIZUMAB PEGOL RA [Suspect]
     Active Substance: CERTOLIZUMAB PEGOL
     Dosage: 200 MG, UNK, DOSES RECEIVED: 26
     Route: 058
     Dates: start: 20120807, end: 20130716
  8. FOLIC ACID. [Concomitant]
     Active Substance: FOLIC ACID
     Dosage: 3 MG, ONCE DAILY (QD)
     Route: 048
     Dates: start: 20121228
  9. FOLIC ACID. [Concomitant]
     Active Substance: FOLIC ACID
     Dosage: 1 MG, ONCE DAILY (QD)
     Route: 048
     Dates: start: 20120626, end: 20121227
  10. TIMOLOL [Concomitant]
     Active Substance: TIMOLOL
     Indication: GLAUCOMA
     Dosage: UNK, ONCE DAILY (QD)
     Dates: start: 2009

REACTIONS (1)
  - Basal cell carcinoma [Recovered/Resolved]

NARRATIVE: CASE EVENT DATE: 20130101
